FAERS Safety Report 5512982-5 (Version None)
Quarter: 2007Q4

REPORT INFORMATION
  Report Type: 
  Country: None (occurrence: None)
  Receive Date: 20071108
  Receipt Date: 20071023
  Transmission Date: 20080405
  Serious: Yes (Other)
  Sender: FDA-Public Use
  Company Number: B0493634A

PATIENT
  Sex: 0

DRUGS (2)
  1. ABACAVIR SULFATE [Suspect]
     Indication: HIV INFECTION
  2. ANTIRETROVIRAL MEDICATION [Concomitant]

REACTIONS (2)
  - DRUG HYPERSENSITIVITY [None]
  - PNEUMONITIS [None]
